FAERS Safety Report 8406842-X (Version None)
Quarter: 2012Q2

REPORT INFORMATION
  Report Type: 
  Country: None (occurrence: None)
  Receive Date: 20120604
  Receipt Date: 20120530
  Transmission Date: 20120825
  Serious: Yes (Disabling, Other)
  Sender: FDA-Public Use
  Company Number: US-PFIZER INC-2012131285

PATIENT
  Sex: Male

DRUGS (6)
  1. KLONOPIN [Concomitant]
     Dosage: UNK, PRN
  2. METFORMIN [Concomitant]
     Dosage: UNK
  3. ASPIRIN [Concomitant]
     Dosage: UNK
  4. VERAPAMIL [Concomitant]
     Dosage: UNK
  5. LOPID [Suspect]
     Dosage: 600 MG, TWICE DAILY
  6. CELEXA [Concomitant]
     Dosage: UNK

REACTIONS (4)
  - DIZZINESS [None]
  - FISTULA [None]
  - NYSTAGMUS [None]
  - VERTIGO POSITIONAL [None]
